FAERS Safety Report 5451159-9 (Version None)
Quarter: 2007Q3

REPORT INFORMATION
  Report Type: 
  Country: None (occurrence: None)
  Receive Date: 20070802
  Receipt Date: 20060713
  Transmission Date: 20080115
  Serious: Yes (Other)
  Sender: FDA-Public Use
  Company Number: 2006087303

PATIENT
  Sex: Female

DRUGS (2)
  1. CAMPTOSAR [Suspect]
     Indication: DRUG USE FOR UNKNOWN INDICATION
     Dosage: 340 MG (340 MG, QD INTERVAL: EVERY 3 WEEKS)
  2. ATROPINE [Concomitant]

REACTIONS (4)
  - DYSARTHRIA [None]
  - HYPOAESTHESIA [None]
  - THROAT TIGHTNESS [None]
  - TONGUE DISORDER [None]
